FAERS Safety Report 26032088 (Version 1)
Quarter: 2025Q4

REPORT INFORMATION
  Report Type: Spontaneous
  Country: AU (occurrence: None)
  Receive Date: 20251112
  Receipt Date: 20251112
  Transmission Date: 20260118
  Serious: Yes (Other)
  Sender: UCB
  Company Number: AU-UCBSA-2025070169

PATIENT

DRUGS (1)
  1. BIMEKIZUMAB [Suspect]
     Active Substance: BIMEKIZUMAB
     Indication: Psoriasis
     Dosage: 160 MILLIGRAM, EV 8 WEEKS

REACTIONS (4)
  - Hyperthyroidism [Unknown]
  - Pharyngeal mass [Unknown]
  - Chest pain [Not Recovered/Not Resolved]
  - Off label use [Unknown]
